FAERS Safety Report 10632448 (Version 1)
Quarter: 2014Q4

REPORT INFORMATION
  Report Type: Spontaneous
  Country: US (occurrence: None)
  Receive Date: 20141203
  Receipt Date: 20141203
  Transmission Date: 20150529
  Serious: No
  Sender: FDA-Public Use
  Company Number: None

PATIENT

DRUGS (1)
  1. VANCOMYCIN HCL [Suspect]
     Active Substance: VANCOMYCIN HYDROCHLORIDE
     Dosage: TYPE: VIAL

REACTIONS (4)
  - Incorrect dose administered [None]
  - Renal impairment [None]
  - Device computer issue [None]
  - Wrong technique in drug usage process [None]
